FAERS Safety Report 14206241 (Version 1)
Quarter: 2017Q4

REPORT INFORMATION
  Report Type: Spontaneous
  Country: RS (occurrence: RS)
  Receive Date: 20171120
  Receipt Date: 20171120
  Transmission Date: 20180321
  Serious: Yes (Hospitalization)
  Sender: FDA-Public Use
  Company Number: RS-VALIDUS PHARMACEUTICALS LLC-RS-2017VAL001528

PATIENT
  Age: 53 Year
  Sex: Female

DRUGS (1)
  1. BROMOCRIPTINE MESYLATE [Suspect]
     Active Substance: BROMOCRIPTINE MESYLATE
     Indication: PROLACTIN-PRODUCING PITUITARY TUMOUR
     Dosage: 15 MG, QD

REACTIONS (1)
  - Cataplexy [Recovered/Resolved]
